FAERS Safety Report 6551168-2 (Version None)
Quarter: 2010Q1

REPORT INFORMATION
  Report Type: 
  Country: None (occurrence: None)
  Receive Date: 20100121
  Receipt Date: 20100109
  Transmission Date: 20100710
  Serious: Yes (Other)
  Sender: FDA-Public Use
  Company Number: 1000010861

PATIENT
  Age: 85 Year
  Sex: Male

DRUGS (8)
  1. NEBIVOLOL HCL [Suspect]
     Indication: HYPERTENSION
     Dosage: 0.1786 MG (1.25 MG, 1 IN 1 WK) ,ORAL
     Route: 048
     Dates: start: 20080808
  2. NEBIVOLOL HCL [Suspect]
     Indication: HYPERTENSION
     Dosage: 0.625 MG (0.625 MG, 1 IN 1 D) , ORAL
     Route: 048
  3. ASPIRIN [Concomitant]
  4. LISINOPRIL [Concomitant]
  5. AMLODIPINE [Concomitant]
  6. SIMVASTATIN [Concomitant]
  7. LANSOPRAZOLE [Concomitant]
  8. QUININE SULFATE [Concomitant]

REACTIONS (4)
  - BLOOD PRESSURE INCREASED [None]
  - DIZZINESS [None]
  - MUSCLE SPASMS [None]
  - NIGHTMARE [None]
